FAERS Safety Report 19503075 (Version 1)
Quarter: 2021Q3

REPORT INFORMATION
  Report Type: Spontaneous
  Country: ES (occurrence: ES)
  Receive Date: 20210707
  Receipt Date: 20210707
  Transmission Date: 20211014
  Serious: Yes (Death, Other)
  Sender: FDA-Public Use
  Company Number: ES-LUPIN PHARMACEUTICALS INC.-2021-11156

PATIENT

DRUGS (2)
  1. NINTEDANIB [Suspect]
     Active Substance: NINTEDANIB
     Indication: RHEUMATOID ARTHRITIS
     Dosage: UNK
     Route: 065
  2. LEFLUNOMIDE. [Suspect]
     Active Substance: LEFLUNOMIDE
     Indication: RHEUMATOID ARTHRITIS
     Dosage: UNK
     Route: 065

REACTIONS (3)
  - Interstitial lung disease [Fatal]
  - Condition aggravated [Fatal]
  - Pneumonia [Fatal]
